FAERS Safety Report 5392827-7 (Version None)
Quarter: 2007Q3

REPORT INFORMATION
  Report Type: 
  Country: None (occurrence: None)
  Receive Date: 20070720
  Receipt Date: 20070710
  Transmission Date: 20080115
  Serious: Yes (Death)
  Sender: FDA-Public Use
  Company Number: KR-PFIZER INC-2007056740

PATIENT
  Sex: Male

DRUGS (1)
  1. SUTENT [Suspect]
     Dosage: DAILY DOSE:25MG
     Route: 048

REACTIONS (1)
  - DEATH [None]
